FAERS Safety Report 4871307-9 (Version None)
Quarter: 2005Q4

REPORT INFORMATION
  Report Type: 
  Country: None (occurrence: None)
  Receive Date: 20051229
  Receipt Date: 20051227
  Transmission Date: 20060501
  Serious: Yes (Other)
  Sender: FDA-Public Use
  Company Number: 006308

PATIENT
  Age: 18 Year
  Sex: Female
  Weight: 59 kg

DRUGS (2)
  1. AVIANE (LEVONORGESTREL, ETHINYLESTRADIOL) TABLET [Suspect]
     Indication: MENSTRUATION IRREGULAR
     Dosage: 1 TABLET, QD, ORAL
     Route: 048
     Dates: start: 20051225
  2. AVIANE (LEVONORGESTREL, ETHINYLESTRADIOL) TABLET [Suspect]
     Indication: ORAL CONTRACEPTION
     Dosage: 1 TABLET, QD, ORAL
     Route: 048
     Dates: start: 20051225

REACTIONS (3)
  - DIZZINESS [None]
  - INADEQUATE DIET [None]
  - LOSS OF CONSCIOUSNESS [None]
